FAERS Safety Report 15158777 (Version 1)
Quarter: 2018Q3

REPORT INFORMATION
  Report Type: Spontaneous
  Country: US (occurrence: US)
  Receive Date: 20180718
  Receipt Date: 20180718
  Transmission Date: 20181010
  Serious: No
  Sender: FDA-Public Use
  Company Number: US-SA-2018SA192945

PATIENT
  Age: 62 Year
  Sex: Male

DRUGS (6)
  1. LASIX [Concomitant]
     Active Substance: FUROSEMIDE
  2. ASPIRIN 81 [Concomitant]
     Active Substance: ASPIRIN
  3. VITAMINS NOS [Concomitant]
     Active Substance: VITAMINS
  4. GLATIRAMER [Concomitant]
     Active Substance: GLATIRAMER
  5. AUBAGIO [Suspect]
     Active Substance: TERIFLUNOMIDE
     Indication: MULTIPLE SCLEROSIS
  6. VITAMIN C [ASCORBIC ACID] [Concomitant]

REACTIONS (3)
  - Nausea [Recovered/Resolved]
  - Diarrhoea [Recovered/Resolved]
  - Malaise [Recovered/Resolved]
